FAERS Safety Report 7049816-6 (Version None)
Quarter: 2010Q4

REPORT INFORMATION
  Report Type: 
  Country: None (occurrence: None)
  Receive Date: 20101018
  Receipt Date: 20100914
  Transmission Date: 20110411
  Serious: No
  Sender: FDA-Public Use
  Company Number: US-BAYER-201035609NA

PATIENT
  Age: 48 Year
  Sex: Female
  Weight: 75 kg

DRUGS (7)
  1. BETASERON [Suspect]
     Indication: PRODUCT USED FOR UNKNOWN INDICATION
     Dosage: TOTAL DAILY DOSE: 8 MIU
     Route: 058
  2. LOTREL [Concomitant]
     Dosage: AS USED: 10-20 MG
  3. NEXIUM [Concomitant]
  4. VITAMIN D [Concomitant]
  5. PLAVIX [Concomitant]
  6. VYTORIN [Concomitant]
     Dosage: AS USED: 10-10 MG
  7. ASPIRIN [Concomitant]
     Dosage: EC

REACTIONS (2)
  - OROPHARYNGEAL PAIN [None]
  - PAIN [None]
